FAERS Safety Report 6936097-4 (Version None)
Quarter: 2010Q3

REPORT INFORMATION
  Report Type: 
  Country: None (occurrence: None)
  Receive Date: 20100823
  Receipt Date: 20100811
  Transmission Date: 20110219
  Serious: Yes (Other)
  Sender: FDA-Public Use
  Company Number: TR-NOVOPROD-313072

PATIENT
  Sex: Female
  Weight: 1.1 kg

DRUGS (1)
  1. MIXTARD HUMAN 70/30 [Suspect]
     Indication: GESTATIONAL DIABETES
     Dosage: 10 IU, QD
     Route: 058
     Dates: start: 20100322, end: 20100413

REACTIONS (1)
  - PREMATURE BABY [None]
